FAERS Safety Report 5780131-4 (Version None)
Quarter: 2008Q2

REPORT INFORMATION
  Report Type: 
  Country: None (occurrence: None)
  Receive Date: 20080620
  Receipt Date: 20080611
  Transmission Date: 20081010
  Serious: Yes (Hospitalization)
  Sender: FDA-Public Use
  Company Number: GB-WYE-G01670408

PATIENT
  Sex: Female

DRUGS (1)
  1. TORISEL [Suspect]
     Dosage: 25-50MG/ML, FREQUENCY UNKNOWN
     Route: 065

REACTIONS (1)
  - LARGE INTESTINE PERFORATION [None]
